FAERS Safety Report 4409615-8 (Version None)
Quarter: 2004Q3

REPORT INFORMATION
  Report Type: 
  Country: None (occurrence: None)
  Receive Date: 20040727
  Receipt Date: 20040727
  Transmission Date: 20050211
  Serious: Yes (Life-Threatening, Hospitalization, Disabling)
  Sender: FDA-Public Use
  Company Number: None

PATIENT
  Age: 46 Year
  Sex: Female
  Weight: 89.8122 kg

DRUGS (2)
  1. CELEBREX [Suspect]
     Indication: ARTHRALGIA
     Dosage: 1 CAP TWICE DAILY
     Dates: start: 20020117
  2. BEXTRA [Suspect]
     Dosage: 1 CAP 3 TIMES DAILY
     Dates: start: 20020503, end: 20020527

REACTIONS (1)
  - STEVENS-JOHNSON SYNDROME [None]
